FAERS Safety Report 16007927 (Version 1)
Quarter: 2019Q1

REPORT INFORMATION
  Report Type: Spontaneous
  Country: SE (occurrence: SE)
  Receive Date: 20190226
  Receipt Date: 20190226
  Transmission Date: 20190418
  Serious: Yes (Other)
  Sender: FDA-Public Use
  Company Number: SE-MYLANLABS-2019M1016915

PATIENT
  Age: 93 Year
  Sex: Female

DRUGS (7)
  1. MINIDERM                           /00021201/ [Concomitant]
     Dosage: UNK
  2. CALCICHEW [Concomitant]
     Active Substance: CALCIUM CARBONATE
  3. VISCOTER [Concomitant]
  4. ALENDRONATE [Suspect]
     Active Substance: ALENDRONATE SODIUM
     Indication: OSTEOPOROSIS
     Dosage: UNK
     Route: 048
     Dates: start: 201711
  5. ENALAPRIL [Concomitant]
     Active Substance: ENALAPRIL
  6. XALCOM [Concomitant]
     Active Substance: LATANOPROST\TIMOLOL
  7. PREDNISOLON                        /00016201/ [Concomitant]
     Active Substance: PREDNISOLONE

REACTIONS (2)
  - Osteonecrosis of jaw [Not Recovered/Not Resolved]
  - Osteomyelitis [Not Recovered/Not Resolved]

NARRATIVE: CASE EVENT DATE: 20180807
